FAERS Safety Report 16747918 (Version 2)
Quarter: 2019Q3

REPORT INFORMATION
  Report Type: Spontaneous
  Country: PL (occurrence: PL)
  Receive Date: 20190827
  Receipt Date: 20190925
  Transmission Date: 20191005
  Serious: Yes (Life-Threatening, Hospitalization, Other)
  Sender: FDA-Public Use
  Company Number: PL-FERRINGPH-2019FE05178

PATIENT
  Age: 30 Year
  Sex: Female
  Weight: 80 kg

DRUGS (2)
  1. CERVIDIL [Suspect]
     Active Substance: DINOPROSTONE
     Indication: LABOUR INDUCTION
     Dosage: 10 MG, ONCE/SINGLE
     Route: 067
     Dates: start: 20190725, end: 20190725
  2. UROSEPT                            /07490501/ [Concomitant]

REACTIONS (2)
  - Premature separation of placenta [Recovered/Resolved]
  - Uterine rupture [Recovered/Resolved with Sequelae]

NARRATIVE: CASE EVENT DATE: 20190725
